FAERS Safety Report 18955858 (Version 1)
Quarter: 2021Q1

REPORT INFORMATION
  Report Type: Spontaneous
  Country: US (occurrence: US)
  Receive Date: 20210302
  Receipt Date: 20210302
  Transmission Date: 20210420
  Serious: Yes (Death, Other)
  Sender: FDA-Public Use
  Company Number: US-NOVAST LABORATORIES LTD.-2021NOV000178

PATIENT
  Age: 14 Year
  Sex: Female

DRUGS (1)
  1. DILTIAZEM HYDROCHLORIDE. [Suspect]
     Active Substance: DILTIAZEM HYDROCHLORIDE
     Indication: PRODUCT USED FOR UNKNOWN INDICATION
     Dosage: UNK
     Route: 048

REACTIONS (4)
  - Bradycardia [Unknown]
  - Toxicity to various agents [Fatal]
  - Seizure [Unknown]
  - Suspected suicide [Fatal]
